FAERS Safety Report 4443413-4 (Version None)
Quarter: 2004Q3

REPORT INFORMATION
  Report Type: 
  Country: None (occurrence: None)
  Receive Date: 20040901
  Receipt Date: 20040820
  Transmission Date: 20050211
  Serious: Yes (Other)
  Sender: FDA-Public Use
  Company Number: 200413895BCC

PATIENT
  Age: 23 Year
  Sex: Female
  Weight: 99.7913 kg

DRUGS (9)
  1. ALEVE [Suspect]
     Indication: MIGRAINE
     Dosage: 220-440 MG, QD, ORAL
     Route: 048
     Dates: start: 20040701, end: 20040801
  2. VALIUM [Concomitant]
  3. XANAX [Concomitant]
  4. LEXAPRO [Concomitant]
  5. ALBUTEROL [Concomitant]
  6. ATIVAN [Concomitant]
  7. ADVAIR DISKUS 100/50 [Concomitant]
  8. RISPERDAL [Concomitant]
  9. DILANTIN [Concomitant]

REACTIONS (4)
  - CONDITION AGGRAVATED [None]
  - CONVULSION [None]
  - FALL [None]
  - LOSS OF CONSCIOUSNESS [None]
